FAERS Safety Report 8451088-2 (Version None)
Quarter: 2012Q2

REPORT INFORMATION
  Report Type: 
  Country: None (occurrence: None)
  Receive Date: 20120620
  Receipt Date: 20120611
  Transmission Date: 20120825
  Serious: Yes (Hospitalization)
  Sender: FDA-Public Use
  Company Number: DE-ROCHE-1078363

PATIENT
  Sex: Male

DRUGS (8)
  1. PREDNISOLONE [Concomitant]
     Dates: start: 20080101
  2. RAMIPRIL [Concomitant]
  3. CALCILAC [Concomitant]
     Dates: start: 20080301
  4. METOPROLOL SUCCINATE [Concomitant]
  5. ACTEMRA [Suspect]
     Indication: RHEUMATOID ARTHRITIS
     Dates: start: 20100701
  6. ASS (GERMANY) [Concomitant]
  7. SIMVASTATIN [Concomitant]
  8. PANTOPRAZOLE [Concomitant]

REACTIONS (1)
  - ACUTE MYOCARDIAL INFARCTION [None]
